FAERS Safety Report 15982086 (Version 1)
Quarter: 2019Q1

REPORT INFORMATION
  Report Type: Spontaneous
  Country: JP (occurrence: JP)
  Receive Date: 20190219
  Receipt Date: 20190219
  Transmission Date: 20190418
  Serious: Yes (Life-Threatening, Hospitalization, Other)
  Sender: FDA-Public Use
  Company Number: JP-MYLANLABS-2019M1015808

PATIENT
  Age: 28 Year
  Sex: Male

DRUGS (4)
  1. CLOTIAZEPAM [Suspect]
     Active Substance: CLOTIAZEPAM
     Indication: INTENTIONAL OVERDOSE
     Dosage: HE INGESTED 0.92 MG/KG OF CLOTIAZEPAM
     Route: 048
  2. INSULIN DEGLUDEC [Concomitant]
     Active Substance: INSULIN DEGLUDEC
     Indication: TYPE 1 DIABETES MELLITUS
     Route: 065
  3. INSULIN ASPART [Concomitant]
     Active Substance: INSULIN ASPART
     Indication: TYPE 1 DIABETES MELLITUS
     Dosage: 7-8 UNITS IN THE MORNING, 6-8 UNITS AT MIDDAY AND 13-15 UNITS IN THE EVENING
     Route: 065
  4. DIPHENHYDRAMINE. [Suspect]
     Active Substance: DIPHENHYDRAMINE
     Indication: PRODUCT USED FOR UNKNOWN INDICATION
     Dosage: HE INGESTED 3.08 KG/MG OF DIPHENHYDRAMINE
     Route: 048

REACTIONS (15)
  - Respiratory failure [Recovering/Resolving]
  - Rhabdomyolysis [Unknown]
  - Hypovolaemic shock [Recovering/Resolving]
  - Pneumonia aspiration [Recovering/Resolving]
  - Suicide attempt [Recovering/Resolving]
  - Dehydration [Recovering/Resolving]
  - Apallic syndrome [Not Recovered/Not Resolved]
  - Brain injury [Recovering/Resolving]
  - Renal impairment [Recovering/Resolving]
  - Diabetic ketoacidosis [Recovering/Resolving]
  - Decubitus ulcer [Unknown]
  - Obstructive airways disorder [Recovering/Resolving]
  - Hypoxia [Recovering/Resolving]
  - Coma [Recovering/Resolving]
  - Intentional overdose [Recovering/Resolving]
